FAERS Safety Report 4952664-1 (Version None)
Quarter: 2006Q1

REPORT INFORMATION
  Report Type: 
  Country: None (occurrence: None)
  Receive Date: 20060324
  Receipt Date: 20060315
  Transmission Date: 20060701
  Serious: Yes (Hospitalization)
  Sender: FDA-Public Use
  Company Number: FR-ABBOTT-06P-056-0328318-00

PATIENT
  Age: 55 Year
  Sex: Male
  Weight: 75 kg

DRUGS (1)
  1. HUMIRA [Suspect]
     Indication: RHEUMATOID ARTHRITIS
     Route: 058
     Dates: start: 20040310, end: 20050215

REACTIONS (8)
  - ASTHENIA [None]
  - BRONCHIECTASIS [None]
  - BRONCHITIS [None]
  - HAEMOPTYSIS [None]
  - INFLUENZA [None]
  - PNEUMONIA [None]
  - PSEUDOMONAS INFECTION [None]
  - PULMONARY FUNCTION TEST ABNORMAL [None]
